FAERS Safety Report 14600877 (Version 2)
Quarter: 2018Q2

REPORT INFORMATION
  Report Type: Report from Study
  Country: JP (occurrence: JP)
  Receive Date: 20180305
  Receipt Date: 20180402
  Transmission Date: 20180711
  Serious: Yes (Hospitalization, Disabling)
  Sender: FDA-Public Use
  Company Number: JP-EISAI MEDICAL RESEARCH-EC-2018-035679

PATIENT
  Age: 61 Year
  Sex: Male
  Weight: 59 kg

DRUGS (13)
  1. FYCOMPA [Suspect]
     Active Substance: PERAMPANEL
     Route: 048
     Dates: start: 20170809, end: 20170822
  2. FYCOMPA [Suspect]
     Active Substance: PERAMPANEL
     Route: 048
     Dates: start: 20171115, end: 20171128
  3. ZYPREXA [Concomitant]
     Active Substance: OLANZAPINE
  4. CLOPIDOGREL [Concomitant]
     Active Substance: CLOPIDOGREL BISULFATE
  5. FYCOMPA [Suspect]
     Active Substance: PERAMPANEL
     Indication: EPILEPSY
     Route: 048
     Dates: start: 20170629, end: 20170711
  6. FYCOMPA [Suspect]
     Active Substance: PERAMPANEL
     Route: 048
     Dates: start: 20170726, end: 20170808
  7. FYCOMPA [Suspect]
     Active Substance: PERAMPANEL
     Route: 048
     Dates: start: 20170823, end: 20171031
  8. SODIUM VALPROATE [Concomitant]
     Active Substance: VALPROATE SODIUM
  9. FYCOMPA [Suspect]
     Active Substance: PERAMPANEL
     Route: 048
     Dates: start: 20171101, end: 20171114
  10. FYCOMPA [Suspect]
     Active Substance: PERAMPANEL
     Route: 048
     Dates: start: 20170712, end: 20170725
  11. QUETIAPINE. [Concomitant]
     Active Substance: QUETIAPINE
  12. FYCOMPA [Suspect]
     Active Substance: PERAMPANEL
     Route: 048
     Dates: start: 20171129
  13. LONASEN [Concomitant]
     Active Substance: BLONANSERIN

REACTIONS (3)
  - Cerebral infarction [Recovered/Resolved with Sequelae]
  - Delusion [Recovering/Resolving]
  - Hallucination [Recovering/Resolving]

NARRATIVE: CASE EVENT DATE: 20170806
